FAERS Safety Report 13595844 (Version 1)
Quarter: 2017Q2

REPORT INFORMATION
  Report Type: Spontaneous
  Country: US (occurrence: US)
  Receive Date: 20170531
  Receipt Date: 20170531
  Transmission Date: 20170830
  Serious: No
  Sender: FDA-Public Use
  Company Number: US-JNJFOC-20170510008

PATIENT
  Age: 6 Decade
  Sex: Female

DRUGS (2)
  1. CHILDRENS MOTRIN [Suspect]
     Active Substance: IBUPROFEN
     Indication: PAIN
     Dosage: DOSAGE: THE MAXIMUM AMOUNT THAT A CHILD CAN TAKE??FREQUENCY 1-2 X WHEN NEEDED
     Route: 048
  2. CHILDRENS MOTRIN [Suspect]
     Active Substance: IBUPROFEN
     Indication: INFLAMMATION
     Dosage: DOSAGE: THE MAXIMUM AMOUNT THAT A CHILD CAN TAKE??FREQUENCY 1-2 X WHEN NEEDED
     Route: 048

REACTIONS (1)
  - Product use issue [Unknown]
